FAERS Safety Report 24796479 (Version 3)
Quarter: 2025Q1

REPORT INFORMATION
  Report Type: Spontaneous
  Country: NZ (occurrence: NZ)
  Receive Date: 20250101
  Receipt Date: 20250110
  Transmission Date: 20250409
  Serious: Yes (Other)
  Sender: ALEXION PHARMACEUTICALS
  Company Number: NZ-AstraZeneca-CH-00776246A

PATIENT
  Age: 72 Year

DRUGS (4)
  1. TAGRISSO [Suspect]
     Active Substance: OSIMERTINIB
     Indication: Metastases to meninges
     Dosage: 160 MILLIGRAM, QD
  2. TAGRISSO [Suspect]
     Active Substance: OSIMERTINIB
     Dosage: 160 MILLIGRAM, QD
     Route: 048
  3. TAGRISSO [Suspect]
     Active Substance: OSIMERTINIB
     Dosage: 160 MILLIGRAM, QD
  4. TAGRISSO [Suspect]
     Active Substance: OSIMERTINIB
     Dosage: 160 MILLIGRAM, QD
     Route: 048

REACTIONS (3)
  - Metastases to thorax [Unknown]
  - Metastases to meninges [Unknown]
  - Metastases to bone [Unknown]
